FAERS Safety Report 8576947-1 (Version None)
Quarter: 2012Q2

REPORT INFORMATION
  Report Type: 
  Country: None (occurrence: None)
  Receive Date: 20120423
  Receipt Date: 20100324
  Transmission Date: 20120825
  Serious: Yes (Other)
  Sender: FDA-Public Use
  Company Number: PHEH2009US11488

PATIENT
  Age: 86 Year
  Sex: Male
  Weight: 65.8 kg

DRUGS (3)
  1. LASIX [Concomitant]
  2. EXJADE [Suspect]
     Indication: MYELODYSPLASTIC SYNDROME
     Dosage: 1 G, QD, ORAL UNK, UNK, ORAL
     Route: 048
     Dates: start: 20090710, end: 20100224
  3. EXJADE [Suspect]
     Indication: MYELODYSPLASTIC SYNDROME
     Dosage: 1 G, QD, ORAL UNK, UNK, ORAL
     Route: 048
     Dates: start: 20090925

REACTIONS (2)
  - BLOOD CREATININE INCREASED [None]
  - RENAL FAILURE [None]
